FAERS Safety Report 9116515 (Version 4)
Quarter: 2013Q3

REPORT INFORMATION
  Report Type: Spontaneous
  Country: FR (occurrence: FR)
  Receive Date: 20130225
  Receipt Date: 20130722
  Transmission Date: 20140515
  Serious: Yes (Hospitalization, Disabling, Other)
  Sender: FDA-Public Use
  Company Number: PHHY2013FR017086

PATIENT
  Sex: Male
  Weight: 85 kg

DRUGS (8)
  1. NEORAL [Suspect]
     Indication: APLASIA
     Dosage: 5 MG/KG, QD
     Dates: start: 20080318
  2. SOLUMEDROL [Suspect]
     Dosage: 2 MG/KG, QD; FROM DAY 6 TO DAY 14
     Dates: start: 20080318
  3. SOLUMEDROL [Suspect]
     Dosage: 0.5 MG/KG, QD (40MG) FROM DAY 15 TO DAY 23
  4. SOLUMEDROL [Suspect]
     Dosage: 20 MG, QD (FROM DAY 24 TO DAY 29)
  5. NEUPOGEN [Suspect]
     Indication: APLASIA
     Dates: start: 200803, end: 200901
  6. NEUPOGEN [Suspect]
     Dosage: 30 MG
  7. THYMOGLOBULINE [Suspect]
     Indication: APLASIA
     Dosage: 298 MG, QD, TILL DAY 5
     Dates: start: 20080318, end: 200901
  8. CORTICOSTEROIDS [Suspect]
     Dates: start: 200803, end: 200901

REACTIONS (30)
  - Osteonecrosis [Not Recovered/Not Resolved]
  - Serum sickness [Recovered/Resolved]
  - Aplasia [Recovered/Resolved]
  - Haemolysis [Unknown]
  - Arthralgia [Recovered/Resolved]
  - Ecchymosis [Unknown]
  - Hepatitis B [Unknown]
  - Cytomegalovirus infection [Unknown]
  - Epstein-Barr virus infection [Unknown]
  - Folliculitis [Unknown]
  - Candida infection [Unknown]
  - Renal impairment [Unknown]
  - Hyperbilirubinaemia [Unknown]
  - Blood lactate dehydrogenase increased [Unknown]
  - Oedema [Not Recovered/Not Resolved]
  - Bone lesion [Not Recovered/Not Resolved]
  - C-reactive protein increased [Not Recovered/Not Resolved]
  - Pain [Not Recovered/Not Resolved]
  - Bone erosion [Not Recovered/Not Resolved]
  - Fracture [Unknown]
  - Sinus bradycardia [Unknown]
  - Immunosuppressant drug level increased [Unknown]
  - Vomiting [Unknown]
  - Nausea [Unknown]
  - Mobility decreased [Not Recovered/Not Resolved]
  - Musculoskeletal pain [Unknown]
  - Arthritis [Unknown]
  - Sacroiliitis [Unknown]
  - Dysarthria [Unknown]
  - Gait disturbance [Unknown]
